FAERS Safety Report 4931418-6 (Version None)
Quarter: 2006Q1

REPORT INFORMATION
  Report Type: 
  Country: None (occurrence: None)
  Receive Date: 20060303
  Receipt Date: 20060125
  Transmission Date: 20060701
  Serious: Yes (Other)
  Sender: FDA-Public Use
  Company Number: PHFR2006GB00661

PATIENT
  Age: 25 Year
  Sex: Male
  Weight: 88 kg

DRUGS (1)
  1. LAMISIL [Suspect]
     Indication: ONYCHOMYCOSIS
     Dosage: 250 MG/DAY
     Route: 048
     Dates: start: 20051024, end: 20051103

REACTIONS (2)
  - MUSCLE CONTRACTIONS INVOLUNTARY [None]
  - TONGUE SPASM [None]
